FAERS Safety Report 13109333 (Version 1)
Quarter: 2017Q1

REPORT INFORMATION
  Report Type: Spontaneous
  Country: JP (occurrence: JP)
  Receive Date: 20170112
  Receipt Date: 20170112
  Transmission Date: 20170428
  Serious: Yes (Other)
  Sender: FDA-Public Use
  Company Number: JP-CELGENEUS-JPN-2017010107

PATIENT

DRUGS (2)
  1. VIDAZA [Suspect]
     Active Substance: AZACITIDINE
     Indication: NON-SMALL CELL LUNG CANCER
     Dosage: 30,40, 60, 80 MILLIGRAM/SQ. METER
     Route: 041
  2. CARBOPLATIN. [Concomitant]
     Active Substance: CARBOPLATIN
     Indication: NON-SMALL CELL LUNG CANCER
     Dosage: 2 MG/ML/MIN
     Route: 041

REACTIONS (20)
  - Diarrhoea [Unknown]
  - Leukopenia [Unknown]
  - Neuropathy peripheral [Unknown]
  - Decreased appetite [Unknown]
  - Hyponatraemia [Unknown]
  - Rash [Unknown]
  - Radiation pneumonitis [Unknown]
  - Neutropenia [Unknown]
  - Infection [Unknown]
  - Oesophagitis [Unknown]
  - Fatigue [Unknown]
  - Constipation [Unknown]
  - Pyrexia [Unknown]
  - Alopecia [Unknown]
  - Vomiting [Unknown]
  - Renal impairment [Unknown]
  - Anaemia [Unknown]
  - Thrombocytopenia [Unknown]
  - Nausea [Unknown]
  - Hepatic function abnormal [Unknown]
